FAERS Safety Report 4570119-3 (Version None)
Quarter: 2005Q1

REPORT INFORMATION
  Report Type: 
  Country: None (occurrence: None)
  Receive Date: 20050126
  Receipt Date: 20050126
  Transmission Date: 20050727
  Serious: Yes (Hospitalization)
  Sender: FDA-Public Use
  Company Number: None

PATIENT
  Sex: Female
  Weight: 89.7669 kg

DRUGS (2)
  1. NEURONTIN [Suspect]
     Indication: MULTIPLE SCLEROSIS
     Dosage: 600 MG TID
  2. NEURONTIN [Suspect]
     Indication: PAIN
     Dosage: 600 MG TID

REACTIONS (4)
  - COMA [None]
  - FLUSHING [None]
  - FOAMING AT MOUTH [None]
  - OVERDOSE [None]
